FAERS Safety Report 12539520 (Version 2)
Quarter: 2016Q4

REPORT INFORMATION
  Report Type: Spontaneous
  Country: US (occurrence: US)
  Receive Date: 20160708
  Receipt Date: 20161012
  Transmission Date: 20170207
  Serious: No
  Sender: FDA-Public Use
  Company Number: US-BIOGEN-2016BI00261752

PATIENT
  Age: 59 Year
  Sex: Female

DRUGS (2)
  1. TECFIDERA [Suspect]
     Active Substance: DIMETHYL FUMARATE
     Route: 065
     Dates: start: 20130812
  2. TECFIDERA [Suspect]
     Active Substance: DIMETHYL FUMARATE
     Indication: MULTIPLE SCLEROSIS
     Route: 065
     Dates: start: 20140311, end: 2016

REACTIONS (6)
  - Arthritis [Unknown]
  - Influenza like illness [Unknown]
  - Gastritis [Unknown]
  - Arthralgia [Unknown]
  - Abdominal pain upper [Unknown]
  - Gastric disorder [Unknown]

NARRATIVE: CASE EVENT DATE: 201601
